FAERS Safety Report 4340721-2 (Version None)
Quarter: 2004Q2

REPORT INFORMATION
  Report Type: 
  Country: None (occurrence: None)
  Receive Date: 20040413
  Receipt Date: 20040330
  Transmission Date: 20050107
  Serious: Yes (Hospitalization)
  Sender: FDA-Public Use
  Company Number: 2004UW04074

PATIENT
  Age: 49 Year
  Sex: Male

DRUGS (14)
  1. CRESTOR [Suspect]
     Indication: BLOOD CHOLESTEROL INCREASED
     Dosage: 20 MG PO
     Route: 048
     Dates: start: 20040114, end: 20040121
  2. CRESTOR [Suspect]
     Indication: CORONARY ARTERY DISEASE
     Dosage: 20 MG PO
     Route: 048
     Dates: start: 20040114, end: 20040121
  3. CRESTOR [Suspect]
     Indication: BLOOD CHOLESTEROL INCREASED
     Dosage: 20 MG PO
     Route: 048
     Dates: start: 20040101
  4. CRESTOR [Suspect]
     Indication: CORONARY ARTERY DISEASE
     Dosage: 20 MG PO
     Route: 048
     Dates: start: 20040101
  5. AMIODARONE HCL [Suspect]
     Indication: VENTRICULAR TACHYCARDIA
     Dosage: 1000 MG DAILY
     Dates: start: 20030101, end: 20040121
  6. DIOVAN [Concomitant]
  7. ISOSORBIDE [Concomitant]
  8. WELLBUTRIN [Concomitant]
  9. TOPROL-XL [Concomitant]
  10. PLAVIX [Concomitant]
  11. ASPIRIN [Concomitant]
  12. FISH OIL [Concomitant]
  13. NITROGLYCERIN [Concomitant]
  14. PAXIL [Concomitant]

REACTIONS (10)
  - ACUTE RESPIRATORY FAILURE [None]
  - BLOOD CHOLESTEROL INCREASED [None]
  - CARDIAC FAILURE CONGESTIVE [None]
  - CORONARY ARTERY DISEASE [None]
  - DRUG INTERACTION [None]
  - DRUG TOXICITY [None]
  - ELECTROCARDIOGRAM ABNORMAL [None]
  - ELECTROCARDIOGRAM T WAVE AMPLITUDE DECREASED [None]
  - PLEURAL EFFUSION [None]
  - PNEUMONIA [None]
